FAERS Safety Report 7215566-6 (Version None)
Quarter: 2011Q1

REPORT INFORMATION
  Report Type: 
  Country: None (occurrence: None)
  Receive Date: 20110107
  Receipt Date: 20101228
  Transmission Date: 20110831
  Serious: Yes (Life-Threatening, Hospitalization)
  Sender: FDA-Public Use
  Company Number: US-ROCHE-750894

PATIENT
  Sex: Male
  Weight: 62.7 kg

DRUGS (3)
  1. TRASTUZUMAB [Suspect]
     Dosage: 450 MG, Q3W
     Route: 042
     Dates: start: 20100914
  2. DOCETAXEL [Suspect]
     Route: 065
  3. CARBOPLATIN [Suspect]
     Route: 065

REACTIONS (1)
  - PULMONARY EMBOLISM [None]
